FAERS Safety Report 21060761 (Version 3)
Quarter: 2023Q1

REPORT INFORMATION
  Report Type: Spontaneous
  Country: US (occurrence: US)
  Receive Date: 20220709
  Receipt Date: 20230309
  Transmission Date: 20230417
  Serious: No
  Sender: FDA-Public Use
  Company Number: US-BRISTOL-MYERS SQUIBB COMPANY-2022-069766

PATIENT
  Age: 65 Year
  Sex: Female

DRUGS (2)
  1. POMALYST [Suspect]
     Active Substance: POMALIDOMIDE
     Indication: Plasma cell myeloma
     Route: 048
  2. POMALYST [Suspect]
     Active Substance: POMALIDOMIDE
     Route: 048
     Dates: start: 20211001

REACTIONS (5)
  - Hair texture abnormal [Not Recovered/Not Resolved]
  - Tooth disorder [Unknown]
  - Muscle spasms [Unknown]
  - Pain [Unknown]
  - Trichorrhexis [Not Recovered/Not Resolved]
